FAERS Safety Report 5618146-9 (Version None)
Quarter: 2008Q1

REPORT INFORMATION
  Report Type: 
  Country: None (occurrence: None)
  Receive Date: 20080207
  Receipt Date: 20071011
  Transmission Date: 20080703
  Serious: No
  Sender: FDA-Public Use
  Company Number: A0687192A

PATIENT
  Age: 27 Year
  Sex: Female

DRUGS (2)
  1. PAXIL [Suspect]
     Indication: DEPRESSION
     Dosage: 20MG PER DAY
     Route: 048
     Dates: start: 20070101, end: 20071003
  2. ALLERGY SHOTS [Concomitant]

REACTIONS (15)
  - CRYING [None]
  - DECREASED APPETITE [None]
  - FATIGUE [None]
  - FEELING OF DESPAIR [None]
  - HYPERHIDROSIS [None]
  - INSOMNIA [None]
  - IRRITABILITY [None]
  - NAUSEA [None]
  - NYSTAGMUS [None]
  - PALPITATIONS [None]
  - PARAESTHESIA [None]
  - RESTLESSNESS [None]
  - TINNITUS [None]
  - VERTIGO [None]
  - WITHDRAWAL SYNDROME [None]
